FAERS Safety Report 22114931 (Version 6)
Quarter: 2023Q2

REPORT INFORMATION
  Report Type: Spontaneous
  Country: CA (occurrence: CA)
  Receive Date: 20230320
  Receipt Date: 20230511
  Transmission Date: 20230722
  Serious: Yes (Hospitalization, Other)
  Sender: FDA-Public Use
  Company Number: CA-PFIZER INC-202300092045

PATIENT
  Age: 75 Year
  Sex: Female
  Weight: 80 kg

DRUGS (12)
  1. RUXIENCE [Suspect]
     Active Substance: RITUXIMAB-PVVR
     Indication: Granulomatosis with polyangiitis
     Dosage: 720 MG, WEEKLY, FOR 3 WEEKS, HOSPITAL START
     Route: 042
     Dates: start: 20230224
  2. RUXIENCE [Suspect]
     Active Substance: RITUXIMAB-PVVR
     Indication: Rheumatoid arthritis
     Dosage: 720 MG, WEEKLY, FOR 3 WEEKS (HAD FIRST DOSE IN HOSPITAL)
     Route: 042
     Dates: start: 20230303
  3. RUXIENCE [Suspect]
     Active Substance: RITUXIMAB-PVVR
     Dosage: 720 MG, 1 WEEK AND 3 DAYS
     Route: 042
     Dates: start: 20230313
  4. RUXIENCE [Suspect]
     Active Substance: RITUXIMAB-PVVR
     Dosage: 720 MG, 1 WEEK AND 3 DAYS
     Route: 042
     Dates: start: 20230313
  5. RUXIENCE [Suspect]
     Active Substance: RITUXIMAB-PVVR
     Dosage: 720 MG, 1 WEEK AND 3 DAYS
     Route: 042
     Dates: start: 20230313
  6. RUXIENCE [Suspect]
     Active Substance: RITUXIMAB-PVVR
     Dosage: 720 MG, 1 WEEK
     Route: 042
     Dates: start: 20230321
  7. RUXIENCE [Suspect]
     Active Substance: RITUXIMAB-PVVR
     Dosage: 720 MG, 1 WEEK
     Route: 042
     Dates: start: 20230321
  8. RUXIENCE [Suspect]
     Active Substance: RITUXIMAB-PVVR
     Dosage: 720 MG, 1 WEEK
     Route: 042
     Dates: start: 20230321
  9. PREDNISONE [Concomitant]
     Active Substance: PREDNISONE
     Dosage: 1 DF
  10. ACETAMINOPHEN [Concomitant]
     Active Substance: ACETAMINOPHEN
     Indication: Premedication
     Dosage: 650 MG
     Dates: start: 20230310, end: 20230310
  11. DIPHENHYDRAMINE [Concomitant]
     Active Substance: DIPHENHYDRAMINE
     Indication: Premedication
     Dosage: 50 MG
     Route: 048
     Dates: start: 20230310, end: 20230310
  12. METHYLPREDNISOLONE [Concomitant]
     Active Substance: METHYLPREDNISOLONE
     Indication: Premedication
     Dosage: HALF DOSE
     Route: 042
     Dates: start: 20230310, end: 20230310

REACTIONS (8)
  - Dyspnoea [Not Recovered/Not Resolved]
  - Oxygen saturation decreased [Recovering/Resolving]
  - Infusion site extravasation [Recovered/Resolved]
  - Poor venous access [Not Recovered/Not Resolved]
  - Blood pressure systolic increased [Not Recovered/Not Resolved]
  - Off label use [Unknown]
  - Off label use [Unknown]
  - Intentional product use issue [Unknown]

NARRATIVE: CASE EVENT DATE: 20230201
